FAERS Safety Report 12678247 (Version 1)
Quarter: 2016Q3

REPORT INFORMATION
  Report Type: Spontaneous
  Country: US (occurrence: US)
  Receive Date: 20160823
  Receipt Date: 20160823
  Transmission Date: 20161109
  Serious: No
  Sender: FDA-Public Use
  Company Number: US-BAYER-2016-159393

PATIENT
  Age: 26 Year
  Sex: Female

DRUGS (1)
  1. SKYLA [Suspect]
     Active Substance: LEVONORGESTREL
     Indication: CONTRACEPTION
     Dosage: 14 MCG/24HR, CONT
     Route: 015
     Dates: start: 20130726

REACTIONS (5)
  - Polymenorrhoea [None]
  - Circumstance or information capable of leading to device use error [None]
  - Procedural pain [None]
  - Product use issue [None]
  - Polymenorrhoea [None]

NARRATIVE: CASE EVENT DATE: 20130726
